FAERS Safety Report 6316048-6 (Version None)
Quarter: 2009Q3

REPORT INFORMATION
  Report Type: 
  Country: None (occurrence: None)
  Receive Date: 20090820
  Receipt Date: 20090810
  Transmission Date: 20100115
  Serious: Yes (Other)
  Sender: FDA-Public Use
  Company Number: US-AMGEN-QUU359480

PATIENT
  Sex: Female

DRUGS (1)
  1. ENBREL [Suspect]
     Indication: RHEUMATOID ARTHRITIS
     Route: 058
     Dates: start: 19990301

REACTIONS (7)
  - CONTUSION [None]
  - DIZZINESS [None]
  - DYSPNOEA [None]
  - FACE INJURY [None]
  - FALL [None]
  - HYPOTHYROIDISM [None]
  - RETINAL DISORDER [None]
